FAERS Safety Report 12116032 (Version 1)
Quarter: 2016Q1

REPORT INFORMATION
  Report Type: Spontaneous
  Country: US (occurrence: US)
  Receive Date: 20160225
  Receipt Date: 20160225
  Transmission Date: 20160526
  Serious: No
  Sender: FDA-Public Use
  Company Number: US-LANTHEUS-LMI-2015-00371

PATIENT
  Age: 57 Year
  Sex: Female
  Weight: 101 kg

DRUGS (7)
  1. DEFINITY [Suspect]
     Active Substance: PERFLUTREN
     Dosage: 1.3 ML DEFINITY DILUTED IN 8.7 ML NORMAL SALINE
     Route: 040
     Dates: start: 20150707, end: 20150707
  2. LOVENOX [Concomitant]
     Active Substance: ENOXAPARIN SODIUM
     Indication: PRODUCT USED FOR UNKNOWN INDICATION
  3. XOPENEX [Concomitant]
     Active Substance: LEVALBUTEROL HYDROCHLORIDE
     Indication: PRODUCT USED FOR UNKNOWN INDICATION
     Dosage: EVERY 4 HOURS
  4. XANAX [Concomitant]
     Active Substance: ALPRAZOLAM
     Indication: PRODUCT USED FOR UNKNOWN INDICATION
     Dosage: DAILY
  5. DEFINITY [Suspect]
     Active Substance: PERFLUTREN
     Indication: STRESS ECHOCARDIOGRAM
     Dosage: 1.3 ML DEFINITY DILUTED IN 8.7 ML NORMAL SALINE
     Route: 040
     Dates: start: 20150707, end: 20150707
  6. LEVOTHYROXINE. [Concomitant]
     Active Substance: LEVOTHYROXINE
     Indication: PRODUCT USED FOR UNKNOWN INDICATION
  7. DEFINITY [Suspect]
     Active Substance: PERFLUTREN
     Dosage: 1.3 ML DEFINITY DILUTED IN 8.7 ML NORMAL SALINE
     Route: 040
     Dates: start: 20150707, end: 20150707

REACTIONS (2)
  - Neck pain [Recovered/Resolved]
  - Back pain [Recovered/Resolved]

NARRATIVE: CASE EVENT DATE: 20150707
